FAERS Safety Report 14769958 (Version 2)
Quarter: 2018Q2

REPORT INFORMATION
  Report Type: Report from Study
  Country: CA (occurrence: CA)
  Receive Date: 20180417
  Receipt Date: 20180620
  Transmission Date: 20180711
  Serious: Yes (Other)
  Sender: FDA-Public Use
  Company Number: CA-AMGEN-CANSL2018048918

PATIENT
  Age: 71 Year
  Sex: Female

DRUGS (6)
  1. PLAVIX [Concomitant]
     Active Substance: CLOPIDOGREL BISULFATE
  2. GRAVOL [Concomitant]
     Active Substance: DIMENHYDRINATE
  3. REPATHA [Suspect]
     Active Substance: EVOLOCUMAB
     Indication: ARTERIOSCLEROSIS
     Dosage: 140 MG, UNK
     Route: 065
     Dates: start: 20180403
  4. METOPROLOL. [Concomitant]
     Active Substance: METOPROLOL
  5. ASA [Concomitant]
     Active Substance: ASPIRIN
  6. EZETROL [Concomitant]
     Active Substance: EZETIMIBE

REACTIONS (5)
  - Sudden onset of sleep [Unknown]
  - Dizziness [Recovered/Resolved]
  - Gait disturbance [Unknown]
  - Fatigue [Recovered/Resolved]
  - Fall [Unknown]

NARRATIVE: CASE EVENT DATE: 201804
